FAERS Safety Report 8825446 (Version 2)
Quarter: 2015Q1

REPORT INFORMATION
  Report Type: Report from Study
  Country: US (occurrence: US)
  Receive Date: 20121004
  Receipt Date: 20150128
  Transmission Date: 20150721
  Serious: Yes (Death, Hospitalization, Other)
  Sender: FDA-Public Use
  Company Number: US-ROCHE-1130858

PATIENT
  Sex: Female
  Weight: 54.03 kg

DRUGS (5)
  1. COMPAZINE [Concomitant]
     Active Substance: PROCHLORPERAZINE MALEATE
  2. RITUXAN [Suspect]
     Active Substance: RITUXIMAB
     Indication: CHRONIC LYMPHOCYTIC LEUKAEMIA
     Route: 042
     Dates: start: 20000906
  3. LEVOTHYROXINE [Concomitant]
     Active Substance: LEVOTHYROXINE
  4. RITUXAN [Suspect]
     Active Substance: RITUXIMAB
     Indication: LYMPHOCYTIC LYMPHOMA
  5. PREVACID [Concomitant]
     Active Substance: LANSOPRAZOLE

REACTIONS (12)
  - Fatigue [Unknown]
  - Swelling [Unknown]
  - Breath sounds abnormal [Unknown]
  - Dehydration [Unknown]
  - Nausea [Unknown]
  - Gait disturbance [Unknown]
  - Disease progression [Unknown]
  - Pyrexia [Unknown]
  - Haemorrhoidal haemorrhage [Unknown]
  - Death [Fatal]
  - Dyspnoea [Unknown]
  - Arthralgia [Unknown]
